FAERS Safety Report 25537899 (Version 1)
Quarter: 2025Q3

REPORT INFORMATION
  Report Type: Spontaneous
  Country: US (occurrence: US)
  Receive Date: 20250710
  Receipt Date: 20250710
  Transmission Date: 20251021
  Serious: No
  Sender: STALLERGENES
  Company Number: US-STALCOR-2025-AER-01151

PATIENT
  Sex: Female

DRUGS (1)
  1. ORALAIR [Suspect]
     Active Substance: ANTHOXANTHUM ODORATUM POLLEN\DACTYLIS GLOMERATA POLLEN\LOLIUM PERENNE POLLEN\PHLEUM PRATENSE POLLEN\
     Indication: Rhinitis allergic
     Route: 060
     Dates: start: 20250325

REACTIONS (4)
  - Ear pruritus [Unknown]
  - Oral pruritus [Unknown]
  - Throat irritation [Unknown]
  - Product dose omission issue [Unknown]
